FAERS Safety Report 6596335-7 (Version None)
Quarter: 2010Q1

REPORT INFORMATION
  Report Type: 
  Country: None (occurrence: None)
  Receive Date: 20100223
  Receipt Date: 20100212
  Transmission Date: 20100710
  Serious: Yes (Other)
  Sender: FDA-Public Use
  Company Number: PHEH2009US01137

PATIENT
  Sex: Female
  Weight: 69.841 kg

DRUGS (20)
  1. ZOMETA [Suspect]
     Dosage: 4MG MONTHLY
     Dates: start: 20040601, end: 20050901
  2. AREDIA [Suspect]
     Dosage: UNK
  3. TUMS [Concomitant]
  4. FEMARA [Concomitant]
     Dosage: 2.5 MG, QD
  5. VESICARE [Concomitant]
  6. DOCUSATE SODIUM [Concomitant]
  7. LETROZOLE [Concomitant]
  8. EXELON [Concomitant]
     Dosage: UNK
     Dates: end: 20080101
  9. CIPRO [Concomitant]
     Dosage: 500 MG /  BID
  10. NEOSPORIN (NEOMYCIN SULFATE/POLYMYXIN B SULFATE) [Concomitant]
     Dosage: UNK
  11. BACTROBAN [Concomitant]
     Dosage: UNK
     Dates: start: 20040921
  12. DARVOCET-N 100 [Concomitant]
     Dosage: UNK
     Dates: end: 20040826
  13. TYLENOL-500 [Concomitant]
     Indication: PAIN
     Dosage: UNK
  14. BIAXIN [Concomitant]
     Dosage: 500 MG / DAILY
  15. PHENERGAN EXPECTORANT W/ CODEINE [Concomitant]
     Dosage: UNK
     Dates: start: 20040714
  16. CLINDAMYCIN [Concomitant]
  17. TAMOXIFEN CITRATE [Concomitant]
     Dosage: UNK
  18. FOSAMAX [Concomitant]
     Dosage: UNK
  19. KEFLEX [Concomitant]
  20. FLOVENT [Concomitant]

REACTIONS (55)
  - AMNESIA [None]
  - ANAL SPHINCTER ATONY [None]
  - ANORECTAL DISORDER [None]
  - ARTHRALGIA [None]
  - ARTIFICIAL CROWN PROCEDURE [None]
  - ASTHENIA [None]
  - BALANCE DISORDER [None]
  - BONE DISORDER [None]
  - BREAST CANCER IN SITU [None]
  - CARDIOMEGALY [None]
  - CELLULITIS [None]
  - COLD SWEAT [None]
  - CORONARY ARTERY DISEASE [None]
  - COUGH [None]
  - DEAFNESS [None]
  - DYSPEPSIA [None]
  - ENDOMETRIAL HYPERPLASIA [None]
  - FALL [None]
  - FATIGUE [None]
  - GASTROINTESTINAL HAEMORRHAGE [None]
  - HAEMATOCHEZIA [None]
  - HEPATIC CYST [None]
  - HEPATIC LESION [None]
  - HIATUS HERNIA [None]
  - HYPERSOMNIA [None]
  - INCONTINENCE [None]
  - JOINT SWELLING [None]
  - LOOSE TOOTH [None]
  - LUNG CONSOLIDATION [None]
  - LUNG DISORDER [None]
  - LUNG INFILTRATION [None]
  - NOCTURIA [None]
  - NODULE [None]
  - OBSTRUCTIVE AIRWAYS DISORDER [None]
  - ORAL MUCOSAL ERYTHEMA [None]
  - OSTEOMYELITIS [None]
  - OSTEONECROSIS [None]
  - PALATAL OEDEMA [None]
  - PLEURAL FIBROSIS [None]
  - PNEUMONITIS [None]
  - POLLAKIURIA [None]
  - POSTMENOPAUSE [None]
  - PRESBYACUSIS [None]
  - PRIMARY SEQUESTRUM [None]
  - PURULENT DISCHARGE [None]
  - RECTAL HAEMORRHAGE [None]
  - RIB FRACTURE [None]
  - SOFT TISSUE INFLAMMATION [None]
  - SOMNOLENCE [None]
  - THIRST [None]
  - TOOTH EXTRACTION [None]
  - TOOTH FRACTURE [None]
  - URINARY TRACT INFECTION [None]
  - VOMITING [None]
  - WEIGHT DECREASED [None]
